FAERS Safety Report 18333062 (Version 6)
Quarter: 2021Q1

REPORT INFORMATION
  Report Type: Report from Study
  Country: CN (occurrence: CN)
  Receive Date: 20200930
  Receipt Date: 20210324
  Transmission Date: 20210419
  Serious: Yes (Hospitalization)
  Sender: FDA-Public Use
  Company Number: CN-ROCHE-2665079

PATIENT
  Age: 61 Year
  Sex: Female
  Weight: 51 kg

DRUGS (34)
  1. BLINDED ATEZOLIZUMAB [Suspect]
     Active Substance: ATEZOLIZUMAB
     Indication: NON-SMALL CELL LUNG CANCER STAGE IV
     Dosage: DATE OF MOST RECENT DOSE OF BLINDED ATEZOLIZUMAB PRIOR TO AE ONSET 06/AUG/2020.?DATE OF MOST RECENT
     Route: 041
     Dates: start: 20200806
  2. OXYCODONE HYDROCHLORIDE. [Concomitant]
     Active Substance: OXYCODONE HYDROCHLORIDE
     Indication: PAIN
     Dates: start: 20200615, end: 20200909
  3. POLYENE PHOSPHATIDYLCHOLINE [Concomitant]
     Active Substance: PHOSPHOLIPID
     Indication: HEPATIC ENZYME INCREASED
     Dates: start: 20200803, end: 20200824
  4. CARBOPLATIN. [Suspect]
     Active Substance: CARBOPLATIN
     Indication: NON-SMALL CELL LUNG CANCER STAGE IV
     Dosage: ACHIEVE AN INITIAL TARGET AUC OF 6 MG/ML/MIN.?DATE OF MOST RECENT DOSE OF CARBOPLATIN PRIOR TO AE ON
     Route: 042
     Dates: start: 20200807
  5. PALONOSETRON HYDROCHLORIDE. [Concomitant]
     Active Substance: PALONOSETRON HYDROCHLORIDE
     Indication: PROPHYLAXIS OF NAUSEA AND VOMITING
     Dates: start: 20200807, end: 20200807
  6. PALONOSETRON HYDROCHLORIDE. [Concomitant]
     Active Substance: PALONOSETRON HYDROCHLORIDE
     Dates: start: 20200801, end: 20200801
  7. DEXAMETHASONE SODIUM PHOSPHATE. [Concomitant]
     Active Substance: DEXAMETHASONE SODIUM PHOSPHATE
     Dates: start: 20200930, end: 20200930
  8. INSULIN [Concomitant]
     Active Substance: INSULIN NOS
     Dates: start: 20200922, end: 20200922
  9. DEXAMETHASONE ACETATE [Concomitant]
     Active Substance: DEXAMETHASONE ACETATE
     Route: 048
     Dates: start: 20200806, end: 20200808
  10. DIAMMONIUM GLYCYRRHIZINATE [Concomitant]
     Active Substance: HERBALS\DIAMMONIUM GLYCYRRHIZINATE
     Indication: HEPATIC ENZYME INCREASED
     Dates: start: 20200803, end: 20200824
  11. CODEINE PHOSPHATE;DICLOFENAC SODIUM [Concomitant]
     Indication: PAIN
     Dates: start: 20200611, end: 20200803
  12. LEUCOGEN [Concomitant]
     Active Substance: LEUCOGEN
     Dates: start: 20200902
  13. SANGUISORBA [Concomitant]
     Dates: start: 20200902
  14. COMPOUND GLYCYRRHIZA ORAL SOLUTION [Concomitant]
     Indication: COUGH
     Dates: start: 20200922, end: 20201005
  15. DIOXOPROMETHAZINE HYDROCHLORIDE [Concomitant]
     Active Substance: DIOXOPROMETHAZINE HYDROCHLORIDE
     Indication: COUGH
     Dates: start: 20200922, end: 20201005
  16. DEXAMETHASONE SODIUM PHOSPHATE. [Concomitant]
     Active Substance: DEXAMETHASONE SODIUM PHOSPHATE
     Indication: NAUSEA
     Dates: start: 20200927, end: 20201005
  17. TIOPRONIN [Concomitant]
     Active Substance: TIOPRONIN
     Indication: HEPATIC ENZYME INCREASED
     Dates: start: 20200806, end: 20200810
  18. OMEPRAZOLE. [Concomitant]
     Active Substance: OMEPRAZOLE
     Dates: start: 20200831, end: 20200906
  19. DEXAMETHASONE ACETATE [Concomitant]
     Active Substance: DEXAMETHASONE ACETATE
     Route: 048
     Dates: start: 20200831, end: 20200902
  20. ONDANSETRON HYDROCHLORIDE. [Concomitant]
     Active Substance: ONDANSETRON HYDROCHLORIDE
     Dates: start: 20200831, end: 20200906
  21. RUI BAI [Concomitant]
     Dates: start: 20200820, end: 20200822
  22. BEVACIZUMAB. [Suspect]
     Active Substance: BEVACIZUMAB
     Indication: NON-SMALL CELL LUNG CANCER STAGE IV
     Dosage: DATE OF MOST RECENT DOSE OF BEVACIZUMAB PRIOR TO AE ONSET 31/AUG/2020.
     Route: 042
     Dates: start: 20200806
  23. POLYENE PHOSPHATIDYLCHOLINE [Concomitant]
     Active Substance: PHOSPHOLIPID
     Dates: start: 20200831, end: 20200912
  24. ONDANSETRON HYDROCHLORIDE. [Concomitant]
     Active Substance: ONDANSETRON HYDROCHLORIDE
     Indication: NAUSEA
     Dates: start: 20200810, end: 20200811
  25. BICYCLOL [Concomitant]
     Active Substance: BICYCLOL
     Indication: HEPATIC ENZYME INCREASED
     Dates: start: 20200803, end: 20200814
  26. RUI BAI [Concomitant]
     Dates: start: 20200824, end: 20200825
  27. SHENG XUE BAO [Concomitant]
     Indication: ANAEMIA
     Dates: start: 20200803, end: 20200810
  28. VITAMIN C [Concomitant]
     Active Substance: ASCORBIC ACID
     Dates: start: 20200927, end: 20201005
  29. VITAMIN C [Concomitant]
     Active Substance: ASCORBIC ACID
     Dates: start: 20200922, end: 20201004
  30. PEMETREXED. [Suspect]
     Active Substance: PEMETREXED
     Indication: NON-SMALL CELL LUNG CANCER STAGE IV
     Dosage: DATE OF MOST RECENT DOSE (725 MG) OF PEMETREXED PRIOR TO AE ONSET 07/AUG/2020.?DATE OF MOST RECENT D
     Route: 042
     Dates: start: 20200806
  31. TIOPRONIN [Concomitant]
     Active Substance: TIOPRONIN
     Dates: start: 20200831, end: 20200902
  32. OMEPRAZOLE. [Concomitant]
     Active Substance: OMEPRAZOLE
     Dates: start: 20200806, end: 20200810
  33. MAGNESIUM ISOGLYCYRRHIZINATE [Concomitant]
     Active Substance: MAGNESIUM ISOGLYCYRRHIZINATE
     Indication: HEPATIC ENZYME INCREASED
     Dates: start: 20200806, end: 20200810
  34. SANGUISORBA [Concomitant]
     Dates: start: 20200903, end: 20200911

REACTIONS (2)
  - Thrombocytopenia [Recovered/Resolved]
  - Anaemia [Recovered/Resolved]

NARRATIVE: CASE EVENT DATE: 20200817
